FAERS Safety Report 23191613 (Version 3)
Quarter: 2024Q1

REPORT INFORMATION
  Report Type: Spontaneous
  Country: US (occurrence: US)
  Receive Date: 20231116
  Receipt Date: 20240226
  Transmission Date: 20240410
  Serious: Yes (Other)
  Sender: FDA-Public Use
  Company Number: US-TRAVERE-2023TVT00611

PATIENT
  Age: 40 Year
  Sex: Female
  Weight: 164.65 kg

DRUGS (12)
  1. FILSPARI [Suspect]
     Active Substance: SPARSENTAN
     Indication: IgA nephropathy
     Route: 048
     Dates: start: 20230810
  2. FILSPARI [Suspect]
     Active Substance: SPARSENTAN
     Route: 048
     Dates: end: 20240104
  3. AIRBORNE [Concomitant]
     Active Substance: HERBALS\MINERALS\VITAMINS
  4. TARPEYO [Concomitant]
     Active Substance: BUDESONIDE
     Dates: end: 202312
  5. LOVAZA [Concomitant]
     Active Substance: OMEGA-3-ACID ETHYL ESTERS
  6. ASPIRIN [Concomitant]
     Active Substance: ASPIRIN
  7. LORATADINE [Concomitant]
     Active Substance: LORATADINE
  8. LEVOTHYROXINE SODIUM [Concomitant]
     Active Substance: LEVOTHYROXINE SODIUM
  9. LEXAPRO [Concomitant]
     Active Substance: ESCITALOPRAM OXALATE
  10. FARXIGA [Concomitant]
     Active Substance: DAPAGLIFLOZIN PROPANEDIOL
  11. MOUNJARO [Concomitant]
     Active Substance: TIRZEPATIDE
  12. LASIX [Concomitant]
     Active Substance: FUROSEMIDE

REACTIONS (7)
  - Syncope [Unknown]
  - Asthenia [Recovered/Resolved]
  - Dehydration [Recovered/Resolved]
  - Fatigue [Recovered/Resolved]
  - Hypotension [Unknown]
  - Dizziness [Unknown]
  - Limb discomfort [Unknown]
